FAERS Safety Report 17883947 (Version 1)
Quarter: 2020Q2

REPORT INFORMATION
  Report Type: Spontaneous
  Country: US (occurrence: US)
  Receive Date: 20200611
  Receipt Date: 20200611
  Transmission Date: 20200714
  Serious: Yes (Other)
  Sender: FDA-Public Use
  Company Number: US-PFIZER INC-2020227431

PATIENT
  Age: 26 Year
  Sex: Male
  Weight: 89 kg

DRUGS (4)
  1. TETRACAINE. [Suspect]
     Active Substance: TETRACAINE
     Indication: SPINAL ANAESTHESIA
     Dosage: 10 MG
  2. LIDOCAINE HCL [Suspect]
     Active Substance: LIDOCAINE HYDROCHLORIDE
     Indication: LOCAL ANAESTHESIA
     Dosage: 5 MG
  3. PROCAINE [PROCAINE HYDROCHLORIDE] [Suspect]
     Active Substance: PROCAINE
     Indication: LOCAL ANAESTHESIA
     Dosage: 120 MG
  4. XYLOCAINE [Suspect]
     Active Substance: LIDOCAINE HYDROCHLORIDE
     Indication: ANAESTHESIA
     Dosage: 2 MG
     Route: 061

REACTIONS (1)
  - Pyrexia [Recovered/Resolved]
